FAERS Safety Report 7271480-1 (Version None)
Quarter: 2011Q1

REPORT INFORMATION
  Report Type: 
  Country: None (occurrence: None)
  Receive Date: 20110125
  Receipt Date: 20110125
  Transmission Date: 20110831
  Serious: No
  Sender: FDA-Public Use
  Company Number: None

PATIENT
  Age: 20 Year
  Sex: Male

DRUGS (5)
  1. AUGMENTIN '125' [Suspect]
     Dates: start: 20080905, end: 20080925
  2. GENERAL ANESTHESIA [Suspect]
  3. UNASYN [Concomitant]
  4. NARCOTICS [Suspect]
  5. LEVAQUIN [Concomitant]

REACTIONS (8)
  - DEHYDRATION [None]
  - CHOLESTASIS [None]
  - ABDOMINAL ABSCESS [None]
  - CHOLANGITIS SCLEROSING [None]
  - DIARRHOEA INFECTIOUS [None]
  - HEPATIC FIBROSIS [None]
  - COLITIS ULCERATIVE [None]
  - LIVER INJURY [None]
